FAERS Safety Report 7590540-9 (Version None)
Quarter: 2011Q3

REPORT INFORMATION
  Report Type: 
  Country: None (occurrence: None)
  Receive Date: 20110705
  Receipt Date: 20110628
  Transmission Date: 20111222
  Serious: Yes (Other)
  Sender: FDA-Public Use
  Company Number: US-B.I. PHARMACEUTICALS,INC./RIDGEFIELD-2011-BP-16560BP

PATIENT
  Sex: Male

DRUGS (5)
  1. LANTUS [Concomitant]
  2. CARDIZEM [Concomitant]
  3. PRADAXA [Suspect]
     Indication: ATRIAL FIBRILLATION
     Dosage: 300 MG
     Route: 048
     Dates: start: 20110601, end: 20110601
  4. METOPROLOL TARTRATE [Concomitant]
  5. NOVOLOG [Concomitant]

REACTIONS (2)
  - HEPATOTOXICITY [None]
  - HEPATIC NECROSIS [None]
